FAERS Safety Report 16280707 (Version 1)
Quarter: 2019Q2

REPORT INFORMATION
  Report Type: Spontaneous
  Country: US (occurrence: US)
  Receive Date: 20190401
  Receipt Date: 20190401
  Transmission Date: 20190711
  Serious: Yes (Hospitalization)
  Sender: FDA-Public Use
  Company Number: None

PATIENT
  Sex: Female

DRUGS (11)
  1. OMEPRAZOLE. [Concomitant]
     Active Substance: OMEPRAZOLE
  2. ONDANSETRON [Concomitant]
     Active Substance: ONDANSETRON
  3. SENOKOT [Concomitant]
     Active Substance: SENNOSIDES
  4. AFINITOR [Suspect]
     Active Substance: EVEROLIMUS
     Indication: RENAL CANCER
     Route: 048
     Dates: start: 20190215
  5. PROCHLORPER [Concomitant]
  6. NIFEDIPINE. [Concomitant]
     Active Substance: NIFEDIPINE
  7. PEPCID [Concomitant]
     Active Substance: FAMOTIDINE
  8. SUMATRIPTAN. [Concomitant]
     Active Substance: SUMATRIPTAN
  9. SYNTHROID [Concomitant]
     Active Substance: LEVOTHYROXINE SODIUM
  10. TRAMADOL. [Concomitant]
     Active Substance: TRAMADOL
  11. LEVOTHYROXIN [Concomitant]
     Active Substance: LEVOTHYROXINE

REACTIONS (5)
  - Nausea [None]
  - Cholelithiasis [None]
  - Pancreatitis [None]
  - Diarrhoea [None]
  - Fatigue [None]

NARRATIVE: CASE EVENT DATE: 2019
